FAERS Safety Report 17858722 (Version 1)
Quarter: 2020Q2

REPORT INFORMATION
  Report Type: Report from Study
  Country: None (occurrence: US)
  Receive Date: 20200604
  Receipt Date: 20200604
  Transmission Date: 20200714
  Serious: No
  Sender: FDA-Public Use
  Company Number: US-US WORLDMEDS, LLC-USW202002-000256

PATIENT
  Age: 64 Year
  Sex: Female

DRUGS (9)
  1. APOKYN [Suspect]
     Active Substance: APOMORPHINE HYDROCHLORIDE
     Indication: PARKINSON^S DISEASE
     Route: 058
     Dates: start: 201804, end: 202002
  2. LASIX [Concomitant]
     Active Substance: FUROSEMIDE
     Dosage: UNKNOWN
  3. ATENOLOL. [Concomitant]
     Active Substance: ATENOLOL
     Dosage: UNKNOWN
  4. AMANTADINE. [Concomitant]
     Active Substance: AMANTADINE HYDROCHLORIDE
     Dosage: UNKNOWN
  5. OMEPRAZOLE. [Concomitant]
     Active Substance: OMEPRAZOLE
     Dosage: UNKNOWN
  6. PRAVASTATIN. [Concomitant]
     Active Substance: PRAVASTATIN
     Dosage: UNKNOWN
  7. AZILECT [Concomitant]
     Active Substance: RASAGILINE MESYLATE
     Dosage: UNKNOWN
  8. TRAMADOL. [Concomitant]
     Active Substance: TRAMADOL
     Dosage: UNKNOWN
  9. ALPRAZOLAM. [Concomitant]
     Active Substance: ALPRAZOLAM
     Dosage: UNKNOWN

REACTIONS (1)
  - Confusional state [Recovered/Resolved]

NARRATIVE: CASE EVENT DATE: 202001
